FAERS Safety Report 23728626 (Version 1)
Quarter: 2024Q2

REPORT INFORMATION
  Report Type: Spontaneous
  Country: CN (occurrence: CN)
  Receive Date: 20240410
  Receipt Date: 20240410
  Transmission Date: 20240715
  Serious: Yes (Hospitalization, Other)
  Sender: FDA-Public Use
  Company Number: CN-PFIZER INC-PV202400046193

PATIENT
  Age: 80 Year
  Sex: Male
  Weight: 68 kg

DRUGS (1)
  1. VFEND [Suspect]
     Active Substance: VORICONAZOLE
     Indication: Chronic obstructive pulmonary disease
     Dosage: 0.2 G, 2X/DAY
     Route: 048
     Dates: start: 20240312, end: 20240314

REACTIONS (5)
  - Hallucination [Recovering/Resolving]
  - Disorganised speech [Recovering/Resolving]
  - Insomnia [Recovering/Resolving]
  - Dysphoria [Recovering/Resolving]
  - Off label use [Unknown]

NARRATIVE: CASE EVENT DATE: 20240312
